FAERS Safety Report 9384051 (Version 3)
Quarter: 2013Q3

REPORT INFORMATION
  Report Type: Report from Study
  Country: CA (occurrence: CA)
  Receive Date: 20130705
  Receipt Date: 20130824
  Transmission Date: 20140515
  Serious: Yes (Hospitalization, Other)
  Sender: FDA-Public Use
  Company Number: CA-ROCHE-1171842

PATIENT
  Age: 79 Year
  Sex: Male
  Weight: 67 kg

DRUGS (11)
  1. OMALIZUMAB [Suspect]
     Indication: ASTHMA
     Route: 058
     Dates: start: 20061211
  2. OMALIZUMAB [Suspect]
     Route: 058
     Dates: start: 20100527
  3. OMALIZUMAB [Suspect]
     Route: 058
     Dates: start: 20110302
  4. OMALIZUMAB [Suspect]
     Route: 058
     Dates: start: 20111109
  5. OMALIZUMAB [Suspect]
     Route: 058
     Dates: start: 20120917
  6. OMALIZUMAB [Suspect]
     Route: 058
     Dates: start: 20130108
  7. OMALIZUMAB [Suspect]
     Route: 058
     Dates: start: 20130204
  8. OMALIZUMAB [Suspect]
     Route: 065
     Dates: start: 20130104
  9. OMALIZUMAB [Suspect]
     Route: 058
     Dates: start: 20130527
  10. OMALIZUMAB [Suspect]
     Route: 058
     Dates: start: 20130819
  11. PREDNISONE [Concomitant]
     Indication: PRODUCT USED FOR UNKNOWN INDICATION

REACTIONS (25)
  - Prostate cancer [Unknown]
  - Atrial fibrillation [Unknown]
  - Cystitis [Unknown]
  - Confusional state [Unknown]
  - Blood sodium decreased [Unknown]
  - Systemic lupus erythematosus [Unknown]
  - Hypertension [Unknown]
  - Lung infection pseudomonal [Unknown]
  - Asthma [Recovering/Resolving]
  - Lower respiratory tract infection [Unknown]
  - Urinary tract infection [Unknown]
  - Nasopharyngitis [Recovering/Resolving]
  - Vomiting [Unknown]
  - Influenza [Recovering/Resolving]
  - Viral infection [Not Recovered/Not Resolved]
  - Back pain [Unknown]
  - Hearing impaired [Unknown]
  - Influenza like illness [Unknown]
  - Pain [Unknown]
  - Chest discomfort [Unknown]
  - Upper respiratory tract congestion [Unknown]
  - Abdominal discomfort [Unknown]
  - Starvation [Unknown]
  - Oropharyngeal pain [Unknown]
  - Rhonchi [Unknown]
